FAERS Safety Report 13154966 (Version 1)
Quarter: 2017Q1

REPORT INFORMATION
  Report Type: Report from Study
  Country: US (occurrence: US)
  Receive Date: 20170126
  Receipt Date: 20170126
  Transmission Date: 20170428
  Serious: No
  Sender: FDA-Public Use
  Company Number: US-AMGEN-USASL2017006660

PATIENT
  Sex: Female

DRUGS (2)
  1. KYPROLIS [Suspect]
     Active Substance: CARFILZOMIB
     Indication: PRODUCT USED FOR UNKNOWN INDICATION
     Dosage: UNK
     Route: 065
     Dates: start: 20170112
  2. DEXAMETHASONE. [Concomitant]
     Active Substance: DEXAMETHASONE
     Dosage: UNK

REACTIONS (1)
  - Nasal discomfort [Unknown]

NARRATIVE: CASE EVENT DATE: 201701
